FAERS Safety Report 9165944 (Version 1)
Quarter: 2013Q1

REPORT INFORMATION
  Report Type: Spontaneous
  Country: US (occurrence: None)
  Receive Date: 20130314
  Receipt Date: 20130314
  Transmission Date: 20140127
  Serious: Yes (Other)
  Sender: FDA-Public Use
  Company Number: None

PATIENT
  Sex: 0

DRUGS (3)
  1. HYDROCODONE + ACETAMINOPHEN [Suspect]
  2. TRAMADOL [Suspect]
  3. CYCLOBENZAPRINE [Suspect]

REACTIONS (1)
  - Drug ineffective [None]
